FAERS Safety Report 7380833-2 (Version None)
Quarter: 2011Q1

REPORT INFORMATION
  Report Type: 
  Country: None (occurrence: None)
  Receive Date: 20110329
  Receipt Date: 20110317
  Transmission Date: 20110831
  Serious: Yes (Hospitalization, Disabling)
  Sender: FDA-Public Use
  Company Number: B0457830A

PATIENT
  Sex: Female
  Weight: 68 kg

DRUGS (7)
  1. OMEPRAZOLE [Concomitant]
     Route: 048
     Dates: start: 20070112
  2. GLYCERIN [Concomitant]
     Route: 054
     Dates: start: 20070113, end: 20070114
  3. FENTANYL [Suspect]
     Route: 062
     Dates: start: 20060703
  4. SUNITINIB MALATE [Suspect]
     Indication: METASTATIC RENAL CELL CARCINOMA
     Dosage: 50MG PER DAY
     Route: 048
     Dates: start: 20060809
  5. ONDANSETRON HYDROCHLORIDE [Suspect]
     Route: 048
     Dates: start: 20070113, end: 20070114
  6. METOCLOPRAMIDE HYDROCHLORIDE [Concomitant]
     Route: 048
     Dates: start: 20061228, end: 20070112
  7. CODEINE [Concomitant]
     Route: 054
     Dates: start: 20061130

REACTIONS (6)
  - NAUSEA [None]
  - ABDOMINAL PAIN [None]
  - VOMITING [None]
  - ABDOMINAL DISTENSION [None]
  - FLUID INTAKE REDUCED [None]
  - CONSTIPATION [None]
